APPROVED DRUG PRODUCT: VIGABATRIN
Active Ingredient: VIGABATRIN
Strength: 500MG/PACKET
Dosage Form/Route: FOR SOLUTION;ORAL
Application: A211790 | Product #001
Applicant: CHARTWELL RX SCIENCES LLC
Approved: Mar 10, 2022 | RLD: No | RS: No | Type: DISCN